FAERS Safety Report 18981092 (Version 1)
Quarter: 2021Q1

REPORT INFORMATION
  Report Type: Spontaneous
  Country: IN (occurrence: IN)
  Receive Date: 20210308
  Receipt Date: 20210308
  Transmission Date: 20210420
  Serious: Yes (Other)
  Sender: FDA-Public Use
  Company Number: IN-ROCHE-2785100

PATIENT
  Age: 75 Year
  Sex: Male

DRUGS (4)
  1. ACCENTRIX [Suspect]
     Active Substance: RANIBIZUMAB
     Dosage: FOUR SHOTS
     Route: 065
     Dates: start: 2020
  2. ACCENTRIX [Suspect]
     Active Substance: RANIBIZUMAB
     Dosage: TAKEN ONE
     Route: 065
     Dates: start: 202102
  3. ACCENTRIX [Suspect]
     Active Substance: RANIBIZUMAB
     Dosage: THRICE A YEAR
     Route: 065
  4. ACCENTRIX [Suspect]
     Active Substance: RANIBIZUMAB
     Indication: NEOVASCULAR AGE-RELATED MACULAR DEGENERATION
     Dosage: TWICE A YEAR
     Route: 065

REACTIONS (2)
  - Central vision loss [Unknown]
  - Drug ineffective [Unknown]
